FAERS Safety Report 15306407 (Version 1)
Quarter: 2018Q3

REPORT INFORMATION
  Report Type: Spontaneous
  Country: US (occurrence: US)
  Receive Date: 20180822
  Receipt Date: 20180822
  Transmission Date: 20181010
  Serious: No
  Sender: FDA-Public Use
  Company Number: US-SA-2018SA230097

PATIENT
  Age: 57 Year
  Sex: Female

DRUGS (1)
  1. ZEPHIRAN [Suspect]
     Active Substance: BENZALKONIUM CHLORIDE

REACTIONS (1)
  - Drug hypersensitivity [Unknown]
